FAERS Safety Report 25217336 (Version 1)
Quarter: 2025Q2

REPORT INFORMATION
  Report Type: Spontaneous
  Country: ES (occurrence: ES)
  Receive Date: 20250420
  Receipt Date: 20250420
  Transmission Date: 20250717
  Serious: Yes (Other)
  Sender: AUROBINDO
  Company Number: ES-AEMPS-1658755

PATIENT
  Age: 56 Year
  Sex: Male

DRUGS (1)
  1. MYCOPHENOLIC ACID [Suspect]
     Active Substance: MYCOPHENOLIC ACID
     Indication: Scleroderma
     Dosage: 720 MILLIGRAM, TWO TIMES A DAY
     Route: 048
     Dates: start: 20240604, end: 20240807

REACTIONS (2)
  - Blood creatine phosphokinase increased [Recovering/Resolving]
  - Hepatocellular injury [Recovered/Resolved]

NARRATIVE: CASE EVENT DATE: 20240806
